FAERS Safety Report 8508452-2 (Version None)
Quarter: 2012Q3

REPORT INFORMATION
  Report Type: 
  Country: None (occurrence: None)
  Receive Date: 20120703
  Receipt Date: 20120620
  Transmission Date: 20120928
  Serious: Yes (Hospitalization)
  Sender: FDA-Public Use
  Company Number: HA12-192-AE

PATIENT
  Age: 12 Year
  Sex: Male

DRUGS (6)
  1. NAPROXAN TABLETS (UNKNOWN STRENGTH) [Suspect]
     Indication: ANTINUCLEAR ANTIBODY POSITIVE
     Dosage: ORAL
     Route: 048
     Dates: start: 20030101
  2. NAPROXAN TABLETS (UNKNOWN STRENGTH) [Suspect]
     Indication: JUVENILE ARTHRITIS
     Dosage: ORAL
     Route: 048
     Dates: start: 20030101
  3. NAPROXAN TABLETS (UNKNOWN STRENGTH) [Suspect]
     Indication: RENAL FAILURE
     Dosage: ORAL
     Route: 048
     Dates: start: 20030101
  4. ENBREL [Concomitant]
  5. CLONAZEPAM [Concomitant]
  6. UNSPECIFIED ANTIEPILEPTICS [Concomitant]

REACTIONS (6)
  - DRUG INEFFECTIVE [None]
  - ANTINUCLEAR ANTIBODY POSITIVE [None]
  - CONVULSION [None]
  - MOANING [None]
  - HALLUCINATION, AUDITORY [None]
  - JOINT SWELLING [None]
